FAERS Safety Report 18959162 (Version 3)
Quarter: 2021Q1

REPORT INFORMATION
  Report Type: Spontaneous
  Country: US (occurrence: US)
  Receive Date: 20210302
  Receipt Date: 20210319
  Transmission Date: 20210420
  Serious: Yes (Other)
  Sender: FDA-Public Use
  Company Number: US-IPSEN BIOPHARMACEUTICALS, INC.-2021-04542

PATIENT
  Age: 37 Year
  Sex: Female
  Weight: 59.42 kg

DRUGS (4)
  1. DYSPORT [Suspect]
     Active Substance: ABOBOTULINUMTOXINA
     Indication: SKIN WRINKLING
     Dosage: 125 IU
     Route: 065
     Dates: start: 20210201, end: 20210201
  2. TORADOL [Concomitant]
     Active Substance: KETOROLAC TROMETHAMINE
     Indication: MIGRAINE
     Route: 042
     Dates: start: 20210206
  3. DYSPORT [Suspect]
     Active Substance: ABOBOTULINUMTOXINA
     Indication: SKIN WRINKLING
  4. DYSPORT [Suspect]
     Active Substance: ABOBOTULINUMTOXINA
     Indication: OFF LABEL USE

REACTIONS (18)
  - Diarrhoea [Recovered/Resolved]
  - Tremor [Not Recovered/Not Resolved]
  - Heart rate increased [Recovered/Resolved]
  - Photophobia [Not Recovered/Not Resolved]
  - Confusional state [Not Recovered/Not Resolved]
  - Hyperhidrosis [Recovered/Resolved]
  - Weight decreased [Not Recovered/Not Resolved]
  - Asthenia [Not Recovered/Not Resolved]
  - Vertigo [Not Recovered/Not Resolved]
  - Off label use [Unknown]
  - Dyspnoea [Not Recovered/Not Resolved]
  - Paraesthesia [Recovered/Resolved]
  - Abdominal discomfort [Not Recovered/Not Resolved]
  - Blood pressure increased [Not Recovered/Not Resolved]
  - Fine motor skill dysfunction [Not Recovered/Not Resolved]
  - Cold sweat [Recovered/Resolved]
  - Hemiparesis [Not Recovered/Not Resolved]
  - Tongue dry [Recovered/Resolved]

NARRATIVE: CASE EVENT DATE: 20210201
